FAERS Safety Report 24267224 (Version 4)
Quarter: 2024Q3

REPORT INFORMATION
  Report Type: Spontaneous
  Country: IT (occurrence: IT)
  Receive Date: 20240830
  Receipt Date: 20240926
  Transmission Date: 20241017
  Serious: Yes (Hospitalization, Other)
  Sender: AUROBINDO
  Company Number: IT-JNJFOC-20240815256

PATIENT
  Age: 80 Year
  Sex: Female

DRUGS (10)
  1. LENALIDOMIDE [Suspect]
     Active Substance: LENALIDOMIDE
     Indication: Plasma cell myeloma
     Dosage: DOSE 10
     Route: 065
     Dates: start: 20240716, end: 20240806
  2. DEXAMETHASONE [Suspect]
     Active Substance: DEXAMETHASONE
     Indication: Plasma cell myeloma
     Dosage: UNK
     Route: 065
     Dates: start: 20240717, end: 20240731
  3. DARZALEX [Suspect]
     Active Substance: DARATUMUMAB
     Indication: Plasma cell myeloma
     Dosage: TOTAL DAILY DOSE - 1800 (UNITS UNSPECIFIED)
     Route: 065
     Dates: start: 20240716, end: 20240730
  4. PREGABALIN [Concomitant]
     Active Substance: PREGABALIN
     Indication: Pain in extremity
     Dosage: UNK
     Route: 065
  5. NADROPARIN CALCIUM [Concomitant]
     Active Substance: NADROPARIN CALCIUM
     Indication: Thrombosis prophylaxis
     Dosage: UNK
     Route: 065
  6. SIMVASTATIN [Concomitant]
     Active Substance: SIMVASTATIN
     Indication: Dyslipidaemia
     Dosage: UNK
     Route: 065
  7. ERYTHROPOIETIN [Concomitant]
     Active Substance: ERYTHROPOIETIN
     Indication: Anaemia
     Dosage: UNK
     Route: 065
  8. ENALAPRIL [Concomitant]
     Active Substance: ENALAPRIL
     Indication: Hypertension
     Dosage: UNK
     Route: 065
  9. AMLODIPINE [Concomitant]
     Active Substance: AMLODIPINE BESYLATE
     Indication: Hypertension
     Dosage: UNK
     Route: 065
  10. OMEPRAZOLE [Concomitant]
     Active Substance: OMEPRAZOLE
     Indication: Product used for unknown indication
     Dosage: UNK
     Route: 065

REACTIONS (3)
  - Pyrexia [Recovered/Resolved]
  - Respiratory tract infection viral [Recovered/Resolved]
  - Hyperpyrexia [Unknown]

NARRATIVE: CASE EVENT DATE: 20240803
